FAERS Safety Report 5748885-0 (Version None)
Quarter: 2008Q2

REPORT INFORMATION
  Report Type: 
  Country: None (occurrence: None)
  Receive Date: 20080522
  Receipt Date: 20080509
  Transmission Date: 20081010
  Serious: Yes (Hospitalization, Other)
  Sender: FDA-Public Use
  Company Number: 48278

PATIENT
  Age: 78 Year
  Sex: Male

DRUGS (1)
  1. MITOMYCIN [Suspect]
     Indication: TRANSURETHRAL PROSTATECTOMY
     Dosage: BLADDER INSTILLATION X 1
     Dates: start: 20080509

REACTIONS (3)
  - ACCIDENTAL EXPOSURE [None]
  - ANURIA [None]
  - BLADDER PERFORATION [None]
